FAERS Safety Report 6382909-5 (Version None)
Quarter: 2009Q3

REPORT INFORMATION
  Report Type: 
  Country: None (occurrence: None)
  Receive Date: 20090930
  Receipt Date: 20090917
  Transmission Date: 20100115
  Serious: Yes (Other)
  Sender: FDA-Public Use
  Company Number: PHHY2009VE40617

PATIENT
  Sex: Female

DRUGS (10)
  1. TASIGNA [Suspect]
     Indication: CHRONIC MYELOID LEUKAEMIA
     Dosage: UNK
     Dates: start: 20080301, end: 20090301
  2. TASIGNA [Suspect]
     Dosage: 200 MG, QD
     Dates: start: 20090911
  3. TASIGNA [Suspect]
     Dosage: 200 MG, BID
  4. TASIGNA [Suspect]
     Dosage: 400 MG, BID
     Dates: start: 20090921
  5. METOTREXOL [Concomitant]
     Dosage: 0.25 MG ONCE A WEEK
     Dates: start: 20081201
  6. PREDNISONE TAB [Concomitant]
     Dosage: 15 MG ONCE A DAY
  7. CARVEDILOL [Concomitant]
     Dosage: 12.5 MG, QD
     Dates: start: 20080301
  8. POTASSIUM CITRATE [Concomitant]
  9. IBUPROFEN [Concomitant]
     Dosage: 400 MG, UNK
  10. PLAQUINOL [Concomitant]
     Dosage: 400 MG, QD

REACTIONS (6)
  - DEPRESSED MOOD [None]
  - HEADACHE [None]
  - INFLAMMATION [None]
  - PYREXIA [None]
  - SKIN EXFOLIATION [None]
  - TRANSAMINASES DECREASED [None]
